FAERS Safety Report 19166389 (Version 1)
Quarter: 2021Q2

REPORT INFORMATION
  Report Type: Spontaneous
  Country: ES (occurrence: ES)
  Receive Date: 20210421
  Receipt Date: 20210421
  Transmission Date: 20210717
  Serious: Yes (Other)
  Sender: FDA-Public Use
  Company Number: ES-ELI_LILLY_AND_COMPANY-ES202104004633

PATIENT

DRUGS (5)
  1. TALTZ [Suspect]
     Active Substance: IXEKIZUMAB
     Indication: PSORIASIS
     Dosage: 80 MG, UNKNOWN
     Route: 065
  2. TALTZ [Suspect]
     Active Substance: IXEKIZUMAB
     Indication: HIDRADENITIS
  3. TALTZ [Suspect]
     Active Substance: IXEKIZUMAB
     Indication: ANKYLOSING SPONDYLITIS
  4. TALTZ [Suspect]
     Active Substance: IXEKIZUMAB
     Indication: DERMATITIS ATOPIC
  5. TALTZ [Suspect]
     Active Substance: IXEKIZUMAB
     Indication: HYDROCEPHALUS

REACTIONS (1)
  - Facial paralysis [Unknown]
